FAERS Safety Report 16770054 (Version 1)
Quarter: 2019Q3

REPORT INFORMATION
  Report Type: Spontaneous
  Country: GB (occurrence: GB)
  Receive Date: 20190904
  Receipt Date: 20190904
  Transmission Date: 20191005
  Serious: Yes (Other)
  Sender: FDA-Public Use
  Company Number: GB-JNJFOC-20190832639

PATIENT
  Age: 33 Year
  Sex: Female
  Weight: 93 kg

DRUGS (10)
  1. CODEINE                            /00012602/ [Concomitant]
     Active Substance: CODEINE PHOSPHATE
     Indication: PRODUCT USED FOR UNKNOWN INDICATION
     Route: 065
  2. IBUPROFEN. [Concomitant]
     Active Substance: IBUPROFEN
     Indication: PRODUCT USED FOR UNKNOWN INDICATION
     Route: 065
  3. VITAMIN D                          /00107901/ [Concomitant]
     Active Substance: ERGOCALCIFEROL
     Indication: PRODUCT USED FOR UNKNOWN INDICATION
     Route: 065
  4. REGAINE UNSPECIFIED [Suspect]
     Active Substance: MINOXIDIL
     Indication: ALLERGY TEST
     Dosage: FOAM
     Route: 061
     Dates: start: 20190722, end: 20190724
  5. PARACETAMOL [Concomitant]
     Active Substance: ACETAMINOPHEN
     Indication: PRODUCT USED FOR UNKNOWN INDICATION
     Route: 065
  6. PREGABALIN. [Concomitant]
     Active Substance: PREGABALIN
     Indication: PRODUCT USED FOR UNKNOWN INDICATION
     Route: 065
  7. DIAZEPAM. [Concomitant]
     Active Substance: DIAZEPAM
     Indication: PRODUCT USED FOR UNKNOWN INDICATION
     Route: 065
  8. OMEPRAZOLE. [Concomitant]
     Active Substance: OMEPRAZOLE
     Indication: PRODUCT USED FOR UNKNOWN INDICATION
     Route: 065
  9. BEROCCA                            /02365801/ [Concomitant]
     Indication: PRODUCT USED FOR UNKNOWN INDICATION
     Route: 065
  10. REGAINE UNSPECIFIED [Suspect]
     Active Substance: MINOXIDIL
     Indication: ALOPECIA
     Dosage: FOAM
     Route: 061
     Dates: start: 20180721, end: 20180723

REACTIONS (22)
  - Hypoaesthesia [Unknown]
  - Skin warm [Unknown]
  - Skin swelling [Unknown]
  - Shock [Unknown]
  - Eye swelling [Unknown]
  - Hypoaesthesia oral [Unknown]
  - Paraesthesia oral [Unknown]
  - Application site pruritus [Unknown]
  - Vomiting [Unknown]
  - Skin tightness [Unknown]
  - Wheezing [Unknown]
  - Chills [Unknown]
  - Swelling face [Recovered/Resolved]
  - Dizziness [Unknown]
  - Application site inflammation [Unknown]
  - Application site rash [Recovered/Resolved]
  - Application site erythema [Unknown]
  - Dysstasia [Unknown]
  - Peripheral swelling [Unknown]
  - Incoherent [Unknown]
  - Lymphadenopathy [Unknown]
  - Influenza like illness [Unknown]

NARRATIVE: CASE EVENT DATE: 20180721
